FAERS Safety Report 7272104-X (Version None)
Quarter: 2011Q1

REPORT INFORMATION
  Report Type: 
  Country: None (occurrence: None)
  Receive Date: 20110203
  Receipt Date: 20110126
  Transmission Date: 20110831
  Serious: Yes (Death, Life-Threatening)
  Sender: FDA-Public Use
  Company Number: JP-AMGEN-JPNCT2011006391

PATIENT
  Age: 72 Year
  Sex: Male
  Weight: 57 kg

DRUGS (11)
  1. URSO 250 [Concomitant]
     Dosage: UNK
     Route: 048
  2. LOXONIN [Concomitant]
     Dosage: UNK
     Route: 048
  3. BIOFERMIN [Concomitant]
     Dosage: UNK
     Route: 048
  4. LANSOPRAZOLE [Concomitant]
     Dosage: UNK
     Route: 048
  5. OXYCONTIN [Concomitant]
     Dosage: UNK
     Route: 048
  6. CORTICOSTEROIDS [Concomitant]
     Indication: PROPHYLAXIS
     Dosage: UNK
     Route: 065
  7. AMLODIN OD [Concomitant]
     Dosage: UNK
     Route: 048
  8. PANITUMUMAB [Suspect]
     Indication: COLORECTAL CANCER
     Dosage: 6 MG/KG, Q2WK
     Route: 041
     Dates: start: 20100812, end: 20101012
  9. BLOPRESS [Concomitant]
     Dosage: UNK
     Route: 048
  10. MUCOSTA [Concomitant]
     Dosage: UNK
     Route: 048
  11. VOLTAREN SUPPO [Concomitant]
     Dosage: UNK
     Route: 054

REACTIONS (4)
  - HYPERKALAEMIA [None]
  - DERMATITIS ACNEIFORM [None]
  - COLORECTAL CANCER [None]
  - RENAL IMPAIRMENT [None]
